FAERS Safety Report 9212766 (Version 1)
Quarter: 2013Q1

REPORT INFORMATION
  Report Type: Spontaneous
  Country: US (occurrence: None)
  Receive Date: 20120820
  Receipt Date: 20120820
  Transmission Date: 20140127
  Serious: No
  Sender: FDA-Public Use
  Company Number: 1000037106

PATIENT
  Age: 61 Year
  Sex: Female

DRUGS (7)
  1. VIIBRYD(VILAZODONE)(10 MILLIGRAM,TABLETS) [Suspect]
     Indication: DEPRESSION
     Route: 048
     Dates: start: 20120714
  2. TIAZAC(DILTIAZEM HYDROCHLORIDE)(DI-LTIAZEM HYDROCHLORIDE) [Concomitant]
  3. VALTREX(VALACICLOVIR HYDROCHLORIDE)(VALACICLOVIR HYDROCHLORIDE) [Concomitant]
  4. XANAX (ALPRAZOLAM) (ALPRAZOLAM) [Concomitant]
  5. MORPHINE(MORPHINE)(MORPHINE) [Concomitant]
  6. FUROSEMIDE(FUROSEMIDE)(FUROSEMIDE) [Concomitant]
  7. PROMETHAZINE(PROMETHAZINE)(PROMETHAZINE) [Concomitant]

REACTIONS (2)
  - Nervousness [None]
  - Tremor [None]
